FAERS Safety Report 7738422-3 (Version None)
Quarter: 2011Q3

REPORT INFORMATION
  Report Type: 
  Country: None (occurrence: None)
  Receive Date: 20110908
  Receipt Date: 20110830
  Transmission Date: 20111222
  Serious: Yes (Other)
  Sender: FDA-Public Use
  Company Number: GB-ASTRAZENECA-2011SE47908

PATIENT
  Age: 78 Year
  Sex: Female

DRUGS (1)
  1. QUETIAPINE [Suspect]
     Indication: DELIRIUM
     Dosage: 25 MG INITIAL DOSE TITRATED UP TO DAILY DOSE BETWEEN 12,5 TO 400 MG
     Route: 048

REACTIONS (2)
  - OFF LABEL USE [None]
  - HYPOTENSION [None]
